FAERS Safety Report 15171448 (Version 2)
Quarter: 2018Q4

REPORT INFORMATION
  Report Type: Spontaneous
  Country: US (occurrence: US)
  Receive Date: 20180720
  Receipt Date: 20181101
  Transmission Date: 20190204
  Serious: No
  Sender: FDA-Public Use
  Company Number: US-PFIZER INC-2018293778

PATIENT
  Age: 58 Year
  Sex: Male

DRUGS (1)
  1. EUCRISA [Suspect]
     Active Substance: CRISABOROLE
     Dosage: UNK, 2X/DAY (APPLY A SMALL AMOUNT TO AFFECTED AREAS ON THE BODY AND EXTREMITIES TWICE DAILY AS TOLE)
     Dates: start: 201712, end: 201807

REACTIONS (1)
  - Drug ineffective [Unknown]
